FAERS Safety Report 23435504 (Version 2)
Quarter: 2024Q3

REPORT INFORMATION
  Report Type: Report from Study
  Country: US (occurrence: US)
  Receive Date: 20240124
  Receipt Date: 20240805
  Transmission Date: 20241017
  Serious: Yes (Hospitalization, Other)
  Sender: ABBVIE
  Company Number: US-ABBVIE-5594044

PATIENT
  Sex: Male

DRUGS (4)
  1. RINVOQ [Suspect]
     Active Substance: UPADACITINIB
     Indication: Colitis ulcerative
     Route: 048
     Dates: start: 20230827, end: 20230830
  2. RINVOQ [Suspect]
     Active Substance: UPADACITINIB
     Indication: Colitis ulcerative
     Dosage: LAT ADMIN DATE: 2023
     Route: 048
     Dates: start: 20231017
  3. RINVOQ [Suspect]
     Active Substance: UPADACITINIB
     Indication: Colitis ulcerative
     Route: 048
  4. TALTZ [Concomitant]
     Active Substance: IXEKIZUMAB
     Indication: Product used for unknown indication

REACTIONS (10)
  - Appendiceal abscess [Recovering/Resolving]
  - Sepsis [Recovered/Resolved]
  - Appendicitis [Recovering/Resolving]
  - Illness [Recovering/Resolving]
  - Colitis [Recovering/Resolving]
  - Pulmonary embolism [Recovering/Resolving]
  - Peritonitis [Recovering/Resolving]
  - Sepsis [Recovering/Resolving]
  - Appendicitis perforated [Recovered/Resolved]
  - Infection [Recovered/Resolved]

NARRATIVE: CASE EVENT DATE: 20230101
